FAERS Safety Report 17771741 (Version 2)
Quarter: 2020Q3

REPORT INFORMATION
  Report Type: Spontaneous
  Country: US (occurrence: US)
  Receive Date: 20200512
  Receipt Date: 20200720
  Transmission Date: 20201102
  Serious: Yes (Death)
  Sender: FDA-Public Use
  Company Number: US-VERTEX PHARMACEUTICALS-2020-010657

PATIENT
  Age: 20 Year
  Sex: Female
  Weight: 36 kg

DRUGS (1)
  1. TRIKAFTA [Suspect]
     Active Substance: ELEXACAFTOR\IVACAFTOR\TEZACAFTOR
     Indication: CYSTIC FIBROSIS
     Dosage: (100 MG ELEXACAFTOR/50 MG TEZACAFTOR/75 MG IVACAFTOR; 150 MG IVACAFTOR) TABS, FREQ UNK
     Route: 048
     Dates: start: 20191211, end: 20200419

REACTIONS (1)
  - Death [Fatal]

NARRATIVE: CASE EVENT DATE: 20200419
